FAERS Safety Report 22660666 (Version 1)
Quarter: 2023Q2

REPORT INFORMATION
  Report Type: Spontaneous
  Country: GB (occurrence: GB)
  Receive Date: 20230630
  Receipt Date: 20230630
  Transmission Date: 20230722
  Serious: Yes (Other)
  Sender: FDA-Public Use
  Company Number: None

PATIENT
  Sex: Female

DRUGS (2)
  1. ATORVASTATIN [Suspect]
     Active Substance: ATORVASTATIN
     Indication: Ill-defined disorder
     Dosage: 40 GRAM (24-SEP-2021)
     Route: 048
  2. ATORVASTATIN [Suspect]
     Active Substance: ATORVASTATIN
     Indication: Cerebrovascular accident

REACTIONS (5)
  - Peripheral swelling [Unknown]
  - Sticky skin [Unknown]
  - Vomiting [Unknown]
  - Diarrhoea [Unknown]
  - Dyspnoea [Unknown]
